FAERS Safety Report 8834811 (Version 1)
Quarter: 2012Q4

REPORT INFORMATION
  Report Type: 
  Country: US (occurrence: US)
  Receive Date: 20121010
  Receipt Date: 20121010
  Transmission Date: 20130627
  Serious: Yes (Congenital Anomaly)
  Sender: FDA-Public Use
  Company Number: US-GLAXOSMITHKLINE-A0996752A

PATIENT
  Age: 0 Year
  Sex: Male

DRUGS (1)
  1. PAXIL CR [Suspect]
     Indication: MAJOR DEPRESSION
     Route: 064
     Dates: start: 200408

REACTIONS (2)
  - Talipes [Unknown]
  - Foetal exposure during pregnancy [Unknown]
